FAERS Safety Report 5585982-7 (Version None)
Quarter: 2008Q1

REPORT INFORMATION
  Report Type: 
  Country: None (occurrence: None)
  Receive Date: 20080104
  Receipt Date: 20071227
  Transmission Date: 20080703
  Serious: Yes (Hospitalization)
  Sender: FDA-Public Use
  Company Number: FABR-1000013

PATIENT
  Sex: Female

DRUGS (2)
  1. FABRAZYME [Suspect]
     Indication: FABRY'S DISEASE
     Dates: start: 20070228
  2. ALLEGRA [Suspect]
     Indication: PREMEDICATION

REACTIONS (3)
  - CARDIAC STRESS TEST ABNORMAL [None]
  - PANCREATITIS [None]
  - VOMITING [None]
